FAERS Safety Report 17806955 (Version 1)
Quarter: 2020Q2

REPORT INFORMATION
  Report Type: Spontaneous
  Country: US (occurrence: US)
  Receive Date: 20200519
  Receipt Date: 20200519
  Transmission Date: 20200714
  Serious: Yes (Other)
  Sender: FDA-Public Use
  Company Number: None

PATIENT
  Age: 45 Year
  Sex: Male
  Weight: 73.48 kg

DRUGS (8)
  1. HUMIRA [Suspect]
     Active Substance: ADALIMUMAB
     Indication: ANKYLOSING SPONDYLITIS
     Dosage: FREQUENCY: 1 EVERY 14 DAYS
     Route: 058
     Dates: start: 20200519
  2. HUMIRA [Suspect]
     Active Substance: ADALIMUMAB
     Indication: PSORIATIC ARTHROPATHY
     Dosage: FREQUENCY: 1 EVERY 14 DAYS
     Route: 058
     Dates: start: 20200519
  3. DEXCOM PLATINUM [Concomitant]
  4. TRESIBA INSULIN AUTOPEN [Concomitant]
  5. G6 GLUCOSE MONITOR [Concomitant]
  6. HUMALOG INSULIN AUTOPEN [Concomitant]
  7. CREON ENZYME [Concomitant]
  8. HUMIRA [Suspect]
     Active Substance: ADALIMUMAB
     Indication: COLITIS ULCERATIVE
     Dosage: FREQUENCY: 1 EVERY 14 DAYS
     Route: 058
     Dates: start: 20200519

REACTIONS (4)
  - Injection site extravasation [None]
  - Incorrect dose administered [None]
  - Device malfunction [None]
  - Product quality issue [None]
